FAERS Safety Report 9529333 (Version 1)
Quarter: 2013Q1

REPORT INFORMATION
  Report Type: Spontaneous
  Country: US (occurrence: None)
  Receive Date: 20130329
  Receipt Date: 20130329
  Transmission Date: 20140127
  Serious: No
  Sender: FDA-Public Use
  Company Number: 1000042547

PATIENT
  Age: 78 Year
  Sex: Male

DRUGS (5)
  1. LINZESS (LINACLOTIDE)(145 MICROGRAM, CAPSULES) [Suspect]
     Indication: CONSTIPATION
     Route: 048
     Dates: start: 20130206
  2. NORVASC (AMLODIPINE BESILATE) (AMLODIPINE BESILATE) [Concomitant]
  3. COUMADIN (WARFARIN) (WARFARIN) [Concomitant]
  4. FLOMAX (TAMSULOSIN) (TAMSULOSIN) [Concomitant]
  5. PROSCAR [Suspect]

REACTIONS (1)
  - Diarrhoea [None]
